FAERS Safety Report 7398881-5 (Version None)
Quarter: 2011Q2

REPORT INFORMATION
  Report Type: 
  Country: None (occurrence: None)
  Receive Date: 20110407
  Receipt Date: 20110330
  Transmission Date: 20111010
  Serious: Yes (Life-Threatening)
  Sender: FDA-Public Use
  Company Number: BE-AMGEN-BELCT2011017372

PATIENT
  Age: 60 Year
  Sex: Female
  Weight: 64 kg

DRUGS (4)
  1. PANTOPRAZOLE [Concomitant]
     Dosage: UNK
     Route: 048
  2. URSOCHOL [Concomitant]
     Dosage: UNK
     Route: 048
  3. ETANERCEPT [Suspect]
     Indication: RHEUMATOID ARTHRITIS
     Dosage: 50 MG, QWK
     Route: 058
     Dates: start: 20091208, end: 20100106
  4. BIOFENAC                           /00372302/ [Concomitant]
     Indication: PAIN
     Dosage: UNK

REACTIONS (1)
  - AUTOIMMUNE HEPATITIS [None]
